FAERS Safety Report 18436686 (Version 4)
Quarter: 2021Q2

REPORT INFORMATION
  Report Type: Report from Study
  Country: CZ (occurrence: CZ)
  Receive Date: 20201028
  Receipt Date: 20210617
  Transmission Date: 20210717
  Serious: Yes (Hospitalization)
  Sender: FDA-Public Use
  Company Number: NVSC2020CZ085521

PATIENT
  Age: 62 Year
  Sex: Female
  Weight: 68.6 kg

DRUGS (15)
  1. ISCALIMAB [Suspect]
     Active Substance: ISCALIMAB
     Indication: RENAL TRANSPLANT
     Dosage: 13.2 ML, ONCE/SINGLE
     Route: 042
     Dates: start: 20190618
  2. MYCOPHENOLATE MOFETIL. [Suspect]
     Active Substance: MYCOPHENOLATE MOFETIL
     Dosage: UNK
     Route: 048
  3. FUROSEMIDE. [Concomitant]
     Active Substance: FUROSEMIDE
     Indication: HYPERTENSION
     Dosage: UNK
     Route: 065
     Dates: start: 20200115, end: 20200325
  4. MYCOPHENOLATE MOFETIL. [Suspect]
     Active Substance: MYCOPHENOLATE MOFETIL
     Indication: RENAL TRANSPLANT
     Dosage: 500 MG, BID
     Route: 048
     Dates: start: 20190618, end: 20200324
  5. SALBUTAMOL [Concomitant]
     Active Substance: ALBUTEROL
     Indication: COUGH
     Dosage: UNK
     Route: 065
     Dates: start: 20200310, end: 20200324
  6. SALBUTAMOL [Concomitant]
     Active Substance: ALBUTEROL
     Dosage: UNK
     Route: 065
     Dates: start: 20200325, end: 20200325
  7. BISEPTOL [Concomitant]
     Active Substance: SULFAMETHOXAZOLE\TRIMETHOPRIM
     Indication: COUGH
     Dosage: UNK
     Route: 065
     Dates: start: 20200311, end: 20200812
  8. BUDESONIDUM [Concomitant]
     Active Substance: BUDESONIDE
     Indication: COUGH
     Dosage: UNK
     Route: 065
     Dates: start: 20200310
  9. AMLODIPIN [Concomitant]
     Active Substance: AMLODIPINE BESYLATE
     Indication: HYPERTENSION
     Dosage: UNK
     Route: 065
     Dates: start: 20191106, end: 20200325
  10. PERINDOPRILUM [Concomitant]
     Indication: HYPERTENSION
     Dosage: UNK
     Route: 065
     Dates: start: 20190925, end: 20200325
  11. SPIRONOLACTONUM [Concomitant]
     Indication: OEDEMA PERIPHERAL
     Dosage: UNK
     Route: 065
     Dates: start: 20200115, end: 20200325
  12. AMBROXOL [Concomitant]
     Active Substance: AMBROXOL
     Indication: COUGH
     Dosage: UNK
     Route: 065
     Dates: start: 20200325, end: 20210325
  13. PLASMALYTE [Concomitant]
     Active Substance: ELECTROLYTES NOS
     Indication: DEHYDRATION
     Dosage: UNK
     Route: 065
     Dates: start: 20200325, end: 20200326
  14. URAPIDIL [Concomitant]
     Active Substance: URAPIDIL
     Indication: HYPERTENSION
     Dosage: UNK
     Route: 065
     Dates: start: 20190624, end: 20200325
  15. ERDOSTEINUM [Concomitant]
     Indication: COUGH
     Dosage: UNK
     Route: 065
     Dates: start: 20200325, end: 20200326

REACTIONS (1)
  - Complications of transplanted kidney [Recovered/Resolved]

NARRATIVE: CASE EVENT DATE: 20200325
